FAERS Safety Report 15879377 (Version 1)
Quarter: 2019Q1

REPORT INFORMATION
  Report Type: Spontaneous
  Country: US (occurrence: US)
  Receive Date: 20190126
  Receipt Date: 20190126
  Transmission Date: 20190417
  Serious: Yes (Disabling)
  Sender: FDA-Public Use
  Company Number: None

PATIENT
  Age: 59 Year
  Sex: Male
  Weight: 87.75 kg

DRUGS (4)
  1. LOSARTAN-HCTZ 100-25 MG TAB [Suspect]
     Active Substance: HYDROCHLOROTHIAZIDE\LOSARTAN POTASSIUM
     Indication: HYPERTENSION
     Dosage: ?          QUANTITY:1 TABLET(S);?
     Route: 048
     Dates: start: 20190122, end: 20190126
  2. GLUCOSAMINE CHONDROITIN WITH MSM 750 MG / 600 MG / 500 MG [Concomitant]
  3. COQ10 - 300 MG [Concomitant]
  4. ASPIRIN. [Concomitant]
     Active Substance: ASPIRIN

REACTIONS (5)
  - Heart rate increased [None]
  - Chest discomfort [None]
  - Hypotension [None]
  - Product complaint [None]
  - Heart rate irregular [None]

NARRATIVE: CASE EVENT DATE: 20190125
